FAERS Safety Report 13918028 (Version 1)
Quarter: 2017Q3

REPORT INFORMATION
  Report Type: Report from Study
  Country: CO (occurrence: CO)
  Receive Date: 20170829
  Receipt Date: 20170829
  Transmission Date: 20171127
  Serious: Yes (Hospitalization, Other)
  Sender: FDA-Public Use
  Company Number: CO-ASTELLAS-2017US034451

PATIENT
  Age: 60 Year
  Sex: Female
  Weight: 55 kg

DRUGS (2)
  1. TACROLIMUS. [Suspect]
     Active Substance: TACROLIMUS
     Indication: RENAL TRANSPLANT
     Dosage: 7 MG (1 CAPSULE OF 5 MG AND 2 CAPSULES OF 1 MG EACH), ONCE DAILY
     Route: 048
     Dates: start: 20170701, end: 20170802
  2. TACROLIMUS. [Suspect]
     Active Substance: TACROLIMUS
     Indication: RENAL TRANSPLANT
     Dosage: 7 MG (1 CAPSULE OF 5 MG AND 2 CAPSULES OF 1 MG EACH), ONCE DAILY
     Route: 048
     Dates: start: 20170701, end: 20170802

REACTIONS (3)
  - Diarrhoea [Not Recovered/Not Resolved]
  - Escherichia infection [Unknown]
  - Renal tubular acidosis [Not Recovered/Not Resolved]

NARRATIVE: CASE EVENT DATE: 20170802
